FAERS Safety Report 6290311-X (Version None)
Quarter: 2009Q3

REPORT INFORMATION
  Report Type: 
  Country: None (occurrence: None)
  Receive Date: 20090730
  Receipt Date: 20090219
  Transmission Date: 20100115
  Serious: No
  Sender: FDA-Public Use
  Company Number: US-BRISTOL-MYERS SQUIBB COMPANY-14512743

PATIENT
  Age: 74 Year
  Sex: Male
  Weight: 95 kg

DRUGS (3)
  1. COUMADIN [Suspect]
     Dosage: 2 DOSAGE FORM= 2 TABLETS QD IN THE EVENING.
  2. TRIAMTERENE [Concomitant]
  3. LOVENOX [Concomitant]

REACTIONS (1)
  - INTERNATIONAL NORMALISED RATIO INCREASED [None]
